FAERS Safety Report 17444317 (Version 1)
Quarter: 2020Q1

REPORT INFORMATION
  Report Type: Spontaneous
  Country: US (occurrence: US)
  Receive Date: 20200221
  Receipt Date: 20200221
  Transmission Date: 20200409
  Serious: Yes (Other)
  Sender: FDA-Public Use
  Company Number: US-ASTRAZENECA-2020SE23447

PATIENT
  Sex: Female

DRUGS (2)
  1. FASLODEX [Suspect]
     Active Substance: FULVESTRANT
     Indication: BREAST CANCER FEMALE
     Dosage: UNKNOWN
     Route: 030
  2. IBRANCE [Suspect]
     Active Substance: PALBOCICLIB
     Indication: BREAST CANCER FEMALE
     Dosage: 125 MD, DAILY,DAYS 1-21 EVERY 28 DAYS
     Route: 048
     Dates: start: 20180427

REACTIONS (6)
  - Micturition urgency [Unknown]
  - Back pain [Unknown]
  - Incontinence [Unknown]
  - Pollakiuria [Unknown]
  - Injection site mass [Unknown]
  - Infection [Unknown]

NARRATIVE: CASE EVENT DATE: 20200124
